FAERS Safety Report 19759176 (Version 1)
Quarter: 2021Q3

REPORT INFORMATION
  Report Type: Report from Study
  Country: NL (occurrence: NL)
  Receive Date: 20210827
  Receipt Date: 20210827
  Transmission Date: 20211014
  Serious: Yes (Other)
  Sender: FDA-Public Use
  Company Number: NL-MYLANLABS-2021M1055588

PATIENT
  Age: 41 Year
  Sex: Female

DRUGS (3)
  1. PREDNISOLONE. [Suspect]
     Active Substance: PREDNISOLONE
     Indication: CONJUNCTIVITIS
     Dosage: UNK
  2. ALEMTUZUMAB [Suspect]
     Active Substance: ALEMTUZUMAB
     Indication: RELAPSING-REMITTING MULTIPLE SCLEROSIS
     Dosage: UNK, QD
     Route: 041
     Dates: start: 201803
  3. ALEMTUZUMAB [Suspect]
     Active Substance: ALEMTUZUMAB
     Dosage: UNK, QD
     Route: 041
     Dates: start: 201703, end: 201703

REACTIONS (4)
  - Endocrine ophthalmopathy [Unknown]
  - Conjunctivitis [Not Recovered/Not Resolved]
  - Illness [Not Recovered/Not Resolved]
  - Emotional distress [Unknown]
